FAERS Safety Report 20447376 (Version 4)
Quarter: 2022Q1

REPORT INFORMATION
  Report Type: Report from Study
  Country: US (occurrence: US)
  Receive Date: 20220209
  Receipt Date: 20220317
  Transmission Date: 20220423
  Serious: No
  Sender: FDA-Public Use
  Company Number: US-NOVARTISTESTPH-NVSC2022US027300

PATIENT
  Sex: Male

DRUGS (1)
  1. ENTRESTO [Suspect]
     Active Substance: SACUBITRIL\VALSARTAN
     Indication: Arrhythmia
     Dosage: 50 MG, BID (24/26 MG)
     Route: 048

REACTIONS (8)
  - COVID-19 [Unknown]
  - Back pain [Unknown]
  - Pyrexia [Unknown]
  - Product use in unapproved indication [Unknown]
  - Chest discomfort [Unknown]
  - Heart rate decreased [Unknown]
  - Exercise tolerance decreased [Unknown]
  - Drug effect less than expected [Unknown]
